FAERS Safety Report 7377581-1 (Version None)
Quarter: 2011Q1

REPORT INFORMATION
  Report Type: 
  Country: None (occurrence: None)
  Receive Date: 20110328
  Receipt Date: 20110321
  Transmission Date: 20110831
  Serious: Yes (Hospitalization)
  Sender: FDA-Public Use
  Company Number: CA-US-EMD SERONO, INC.-7034585

PATIENT
  Sex: Female

DRUGS (11)
  1. LOPERAMIDE [Concomitant]
  2. PAROXETINE HCL [Concomitant]
  3. PMS-HYDROMORPHONE [Concomitant]
  4. ACETAMINOPHEN [Concomitant]
  5. NASONEX [Concomitant]
  6. CLONAZEPAM [Concomitant]
  7. FLOVENT HFA PUMP [Concomitant]
  8. REBIF [Suspect]
     Indication: RELAPSING-REMITTING MULTIPLE SCLEROSIS
     Route: 058
     Dates: start: 20101220
  9. LYRICA [Concomitant]
  10. APO-SALVENT [Concomitant]
  11. APO-RANITIDINE [Concomitant]

REACTIONS (17)
  - SINUSITIS [None]
  - BLOOD SODIUM DECREASED [None]
  - INJECTION SITE PAIN [None]
  - INJECTION SITE ERYTHEMA [None]
  - HYPOAESTHESIA [None]
  - NAUSEA [None]
  - WEIGHT DECREASED [None]
  - DIZZINESS [None]
  - FEELING HOT [None]
  - TINNITUS [None]
  - INJECTION SITE HAEMORRHAGE [None]
  - BRONCHITIS [None]
  - HYPERHIDROSIS [None]
  - NASOPHARYNGITIS [None]
  - VOMITING [None]
  - COUGH [None]
  - INJECTION SITE HAEMATOMA [None]
